FAERS Safety Report 23539413 (Version 1)
Quarter: 2024Q1

REPORT INFORMATION
  Report Type: Spontaneous
  Country: CA (occurrence: CA)
  Receive Date: 20240219
  Receipt Date: 20240219
  Transmission Date: 20240410
  Serious: Yes (Other)
  Sender: FDA-Public Use
  Company Number: CA-FreseniusKabi-FK202402465

PATIENT

DRUGS (1)
  1. MIDAZOLAM [Suspect]
     Active Substance: MIDAZOLAM
     Indication: Product used for unknown indication
     Route: 065

REACTIONS (7)
  - Anaphylactic shock [Unknown]
  - Drug hypersensitivity [Unknown]
  - Erythema [Unknown]
  - Hypotension [Unknown]
  - Loss of consciousness [Unknown]
  - Nausea [Unknown]
  - Product contamination [Unknown]
